FAERS Safety Report 22139375 (Version 1)
Quarter: 2023Q1

REPORT INFORMATION
  Report Type: Spontaneous
  Country: CA (occurrence: CA)
  Receive Date: 20230327
  Receipt Date: 20230327
  Transmission Date: 20230417
  Serious: Yes (Other)
  Sender: FDA-Public Use
  Company Number: CA-CELLTRION INC.-2022CA006782

PATIENT

DRUGS (15)
  1. INFLECTRA [Suspect]
     Active Substance: INFLIXIMAB-DYYB
     Indication: Rheumatoid arthritis
     Dosage: 3 MG/KG Q 0, 2, 6 WEEKS, THEN EVERY 8 WEEKS
     Route: 042
     Dates: start: 20190912, end: 20210114
  2. INFLECTRA [Suspect]
     Active Substance: INFLIXIMAB-DYYB
     Dosage: 5 MG/KG Q 6 WEEKS, THEN EVERY 8 WEEKS
     Route: 041
     Dates: start: 20210311
  3. INFLECTRA [Suspect]
     Active Substance: INFLIXIMAB-DYYB
     Dosage: 5 MG/KG Q 6 WEEKS, THEN EVERY 8 WEEKS
     Dates: start: 20220127
  4. INFLECTRA [Suspect]
     Active Substance: INFLIXIMAB-DYYB
     Dosage: 5 MG/KG Q 6 WEEKS, THEN EVERY 8 WEEKS
     Route: 041
     Dates: start: 20220414
  5. INFLECTRA [Suspect]
     Active Substance: INFLIXIMAB-DYYB
     Dosage: 5 MG/KG Q 6 WEEKS, THEN EVERY 8 WEEKS
     Route: 041
     Dates: start: 20220709
  6. INFLECTRA [Suspect]
     Active Substance: INFLIXIMAB-DYYB
     Dosage: 5 MG/KG Q 6 WEEKS, THEN EVERY 8 WEEKS
     Route: 041
     Dates: start: 20220804
  7. INFLECTRA [Suspect]
     Active Substance: INFLIXIMAB-DYYB
     Dosage: 5 MG/KG Q 6 WEEKS, THEN EVERY 8 WEEKS
     Route: 041
     Dates: start: 20220929
  8. INFLECTRA [Suspect]
     Active Substance: INFLIXIMAB-DYYB
     Dosage: 5 MG/KG Q 6 WEEKS, THEN EVERY 8 WEEKS
     Route: 041
     Dates: start: 20221124
  9. INFLECTRA [Suspect]
     Active Substance: INFLIXIMAB-DYYB
     Dosage: 5 MG/KG  Q 6 WEEKS, THEN EVERY 8 WEEKS
     Route: 042
     Dates: start: 20230119
  10. INFLECTRA [Suspect]
     Active Substance: INFLIXIMAB-DYYB
     Dosage: 370 MG  EVERY 8 WEEKS
     Route: 042
     Dates: start: 20230317
  11. FOLIC ACID [Concomitant]
     Active Substance: FOLIC ACID
     Dosage: 1 DF DOSAGE INFORMATION FOR FOLIC ACID NOT AVAILABLE
     Route: 065
  12. METHOTREXATE [Concomitant]
     Active Substance: METHOTREXATE
     Indication: Rheumatoid arthritis
     Dosage: 1 DF, DOSAGE INFORMATION NOT AVAILABLE FOR METHOTREXATE
     Dates: start: 2014
  13. PREVNAR [Concomitant]
     Active Substance: PNEUMOCOCCAL 7-VALENT CONJUGATE VACCINE (DIPHTHERIA CRM197 PROTEIN)
     Dosage: 1 DF DOSAGE INFORMATION FOR PREVNAR NOT AVAILABLE
     Dates: start: 201702, end: 201702
  14. SULFASALAZINE [Concomitant]
     Active Substance: SULFASALAZINE
     Dosage: 1 DF, DOSAGE INFORMATION NOT AVAILABLE FOR SULFASALAZINE; STATUS DISCONTINUED
  15. XELJANZ [Concomitant]
     Active Substance: TOFACITINIB CITRATE
     Indication: Rheumatoid arthritis
     Dosage: 5 MG, 2X/DAY
     Route: 048
     Dates: start: 20190101

REACTIONS (7)
  - Bronchitis [Recovered/Resolved]
  - Sinusitis [Recovered/Resolved]
  - Therapeutic response shortened [Unknown]
  - Acne [Unknown]
  - COVID-19 [Recovered/Resolved]
  - Off label use [Unknown]
  - Inappropriate schedule of product administration [Unknown]

NARRATIVE: CASE EVENT DATE: 20220320
